FAERS Safety Report 14700541 (Version 1)
Quarter: 2018Q1

REPORT INFORMATION
  Report Type: Spontaneous
  Country: JP (occurrence: JP)
  Receive Date: 20180330
  Receipt Date: 20180330
  Transmission Date: 20180509
  Serious: Yes (Other)
  Sender: FDA-Public Use
  Company Number: PHHY2018JP048554

PATIENT
  Age: 68 Year
  Sex: Female

DRUGS (3)
  1. BEVACIZUMAB. [Concomitant]
     Active Substance: BEVACIZUMAB
     Indication: BREAST CANCER STAGE III
     Dosage: 10 MG/KG, (ON DAY 1 AND 15)
     Route: 065
  2. PACLITAXEL. [Suspect]
     Active Substance: PACLITAXEL
     Indication: BREAST CANCER STAGE III
     Dosage: 90 MG/M2, (3 WEEKS ON, 1 WEEK OFF)
     Route: 065
  3. INSULIN [Concomitant]
     Active Substance: INSULIN NOS
     Indication: DIABETES MELLITUS
     Route: 065

REACTIONS (3)
  - Oedema peripheral [Unknown]
  - Neuropathy peripheral [Unknown]
  - Blister [Unknown]
